FAERS Safety Report 4303205-3 (Version None)
Quarter: 2004Q1

REPORT INFORMATION
  Report Type: 
  Country: None (occurrence: None)
  Receive Date: 20040223
  Receipt Date: 20040212
  Transmission Date: 20041129
  Serious: Yes (Hospitalization)
  Sender: FDA-Public Use
  Company Number: US-JNJFOC-20031205602

PATIENT
  Age: 19 Year
  Sex: Female

DRUGS (3)
  1. ORTHO EVRA [Suspect]
     Indication: DYSMENORRHOEA
     Dosage: 1 DOSE (S), 3 IN 4 WEEK, TRANSDERMAL
     Route: 062
     Dates: start: 20021109, end: 20021127
  2. ROWASA [Concomitant]
  3. ASACOL [Concomitant]

REACTIONS (17)
  - ABDOMINAL PAIN [None]
  - ACNE [None]
  - DEHYDRATION [None]
  - DIARRHOEA [None]
  - DIZZINESS [None]
  - DRUG INEFFECTIVE [None]
  - DYSMENORRHOEA [None]
  - HEADACHE [None]
  - METRORRHAGIA [None]
  - NAUSEA [None]
  - NERVOUSNESS [None]
  - PELVIC PAIN [None]
  - RASH SCALY [None]
  - SEBORRHOEIC DERMATITIS [None]
  - SKIN DISORDER [None]
  - TREMOR [None]
  - VOMITING [None]
